FAERS Safety Report 15315141 (Version 1)
Quarter: 2018Q3

REPORT INFORMATION
  Report Type: Other
  Country: CA (occurrence: CA)
  Receive Date: 20180824
  Receipt Date: 20180824
  Transmission Date: 20181010
  Serious: Yes (Hospitalization)
  Sender: FDA-Public Use
  Company Number: CA-PFIZER INC-2018337396

PATIENT
  Age: 66 Year
  Sex: Male

DRUGS (1)
  1. AMIODARONE HCL [Suspect]
     Active Substance: AMIODARONE HYDROCHLORIDE
     Dosage: UNK
     Route: 065

REACTIONS (3)
  - Drug interaction [Recovered/Resolved]
  - Bradycardia [Recovered/Resolved]
  - Syncope [Recovered/Resolved]
